FAERS Safety Report 9818065 (Version 4)
Quarter: 2014Q2

REPORT INFORMATION
  Report Type: Not Available
  Country: SE (occurrence: SE)
  Receive Date: 20140115
  Receipt Date: 20140415
  Transmission Date: 20141212
  Serious: Yes (Other)
  Sender: FDA-Public Use
  Company Number: SE-BEH-2014039960

PATIENT
  Age: 20 Year
  Sex: Male

DRUGS (1)
  1. BERINERT [Suspect]
     Indication: HEREDITARY ANGIOEDEMA
     Dosage: SELF ADMINISTRATION, INJECTION ON ^DEMAND^
     Route: 042

REACTIONS (8)
  - Thrombophlebitis [Recovered/Resolved]
  - Haemorrhage [Recovered/Resolved]
  - Vasculitis [Recovered/Resolved]
  - Angiopathy [Recovered/Resolved]
  - Contusion [Recovered/Resolved]
  - Swelling [Recovered/Resolved]
  - Tenderness [Recovered/Resolved]
  - Erythema [Recovered/Resolved]
